FAERS Safety Report 18584809 (Version 1)
Quarter: 2020Q4

REPORT INFORMATION
  Report Type: Spontaneous
  Country: CN (occurrence: CN)
  Receive Date: 20201207
  Receipt Date: 20201207
  Transmission Date: 20210114
  Serious: Yes (Hospitalization, Other)
  Sender: FDA-Public Use
  Company Number: CN-MSNLABS-2020MSNLIT00421

PATIENT

DRUGS (19)
  1. CAPECITABINE TABLETS 500 MG [Suspect]
     Active Substance: CAPECITABINE
     Indication: GASTRIC CANCER
  2. RECOMBINANT HUMAN THROMBOPOIETIN [Interacting]
     Active Substance: THROMBOPOIETIN
     Indication: PRODUCT USED FOR UNKNOWN INDICATION
     Route: 058
  3. OMEPRAZOLE. [Interacting]
     Active Substance: OMEPRAZOLE
     Indication: GASTRIC DISORDER
     Route: 042
  4. HEMAGGLUTININ [Interacting]
     Active Substance: UNSPECIFIED INGREDIENT
     Indication: HAEMORRHAGE
     Route: 030
  5. NORVANCOMYCIN [Interacting]
     Active Substance: NORVANCOMYCIN
     Indication: FEBRILE NEUTROPENIA
     Route: 042
  6. TS-1 [Suspect]
     Active Substance: GIMERACIL\OTERACIL\TEGAFUR
     Indication: GASTRIC CANCER
     Route: 065
     Dates: start: 20190829
  7. RECOMBINANT HUMAN GRANULOCYTE COLONY STIMULATING FACTOR [Interacting]
     Active Substance: GRANULOCYTE COLONY-STIMULATING FACTOR NOS
     Indication: PRODUCT USED FOR UNKNOWN INDICATION
     Route: 058
  8. NIFEDIPINE. [Concomitant]
     Active Substance: NIFEDIPINE
     Indication: HYPERTENSION
     Route: 048
  9. CAPECITABINE TABLETS 500 MG [Suspect]
     Active Substance: CAPECITABINE
     Indication: GASTRIC CANCER
     Route: 065
     Dates: start: 20190829
  10. HUMAN ALBUMIN [Interacting]
     Active Substance: ALBUMIN HUMAN
     Indication: HYPOPROTEINAEMIA
     Route: 042
  11. AMIODARONE [Interacting]
     Active Substance: AMIODARONE
     Indication: PRODUCT USED FOR UNKNOWN INDICATION
     Route: 040
  12. TS-1 [Suspect]
     Active Substance: GIMERACIL\OTERACIL\TEGAFUR
     Indication: GASTRIC CANCER
  13. MEROPENEM. [Interacting]
     Active Substance: MEROPENEM
     Indication: FEBRILE NEUTROPENIA
     Route: 042
  14. VORICONAZOLE. [Interacting]
     Active Substance: VORICONAZOLE
     Indication: FEBRILE NEUTROPENIA
     Route: 042
  15. SODIUM CHLORIDE. [Interacting]
     Active Substance: SODIUM CHLORIDE
     Indication: PRODUCT USED FOR UNKNOWN INDICATION
     Route: 065
  16. METOPROLOL SUCCINATE. [Interacting]
     Active Substance: METOPROLOL SUCCINATE
     Indication: HEART RATE
     Route: 065
  17. RECOMBINANT HUMAN INTERLEUKIN 11 [Interacting]
     Active Substance: OPRELVEKIN
     Indication: PRODUCT USED FOR UNKNOWN INDICATION
     Route: 065
  18. SODIUM BICARBONATE. [Interacting]
     Active Substance: SODIUM BICARBONATE
     Indication: PRODUCT USED FOR UNKNOWN INDICATION
     Route: 065
  19. AMIODARONE [Interacting]
     Active Substance: AMIODARONE
     Route: 065

REACTIONS (7)
  - Palmar-plantar erythrodysaesthesia syndrome [None]
  - Cardiotoxicity [None]
  - Overdose [Unknown]
  - Mucosal inflammation [None]
  - Drug interaction [Unknown]
  - Myelosuppression [None]
  - Diarrhoea [None]
